FAERS Safety Report 5757794-2 (Version None)
Quarter: 2008Q2

REPORT INFORMATION
  Report Type: 
  Country: None (occurrence: None)
  Receive Date: 20080529
  Receipt Date: 20080520
  Transmission Date: 20081010
  Serious: Yes (Hospitalization)
  Sender: FDA-Public Use
  Company Number: VISP-NO-0805S-0284

PATIENT
  Age: 80 Year
  Sex: Male

DRUGS (1)
  1. VISIPAQUE [Suspect]
     Indication: DRUG USE FOR UNKNOWN INDICATION
     Dosage: 200 ML, SINGLE DOSE, I.A.
     Route: 013
     Dates: start: 20071224, end: 20071224

REACTIONS (1)
  - TOXIC SKIN ERUPTION [None]
